FAERS Safety Report 6062604-2 (Version None)
Quarter: 2009Q1

REPORT INFORMATION
  Report Type: 
  Country: None (occurrence: None)
  Receive Date: 20090203
  Receipt Date: 20090120
  Transmission Date: 20090719
  Serious: Yes (Hospitalization, Other)
  Sender: FDA-Public Use
  Company Number: BE-PFIZER INC-2008101291

PATIENT

DRUGS (7)
  1. CHAMPIX [Suspect]
     Indication: SMOKING CESSATION THERAPY
     Dosage: 1 MG, 2X/DAY
     Route: 048
     Dates: start: 20081108, end: 20081115
  2. CLOPIDOGREL [Concomitant]
     Dosage: UNK
     Route: 048
  3. ACETYLSALICYLIC ACID [Concomitant]
     Dosage: UNK
     Route: 048
  4. FUROSEMIDE [Concomitant]
     Dosage: UNK
     Route: 048
  5. SYMBICORT [Concomitant]
     Dosage: UNK
     Route: 055
  6. DOSULEPIN HYDROCHLORIDE [Concomitant]
     Dosage: UNK
     Route: 048
  7. ACETYLCYSTEINE [Concomitant]
     Dosage: UNK
     Route: 048

REACTIONS (2)
  - APHASIA [None]
  - TRANSIENT ISCHAEMIC ATTACK [None]
